FAERS Safety Report 5327701-5 (Version None)
Quarter: 2007Q2

REPORT INFORMATION
  Report Type: 
  Country: None (occurrence: None)
  Receive Date: 20070517
  Receipt Date: 20070514
  Transmission Date: 20071010
  Serious: Yes (Hospitalization)
  Sender: FDA-Public Use
  Company Number: NZ-MERCK-0704NZL00009

PATIENT
  Age: 68 Year
  Sex: Male

DRUGS (6)
  1. ZOCOR [Suspect]
     Route: 048
     Dates: start: 20030822, end: 20051004
  2. ZOCOR [Suspect]
     Route: 048
     Dates: start: 20051005
  3. WARFARIN [Concomitant]
     Indication: CARDIOMYOPATHY
     Route: 065
  4. [THERAPY UNSPECIFIED] [Concomitant]
     Indication: CARDIOMYOPATHY
     Route: 065
  5. SPIRONOLACTONE [Concomitant]
     Indication: CARDIOMYOPATHY
     Route: 065
  6. LOSARTAN POTASSIUM [Concomitant]
     Indication: CARDIOMYOPATHY
     Route: 065

REACTIONS (7)
  - BLOOD URINE PRESENT [None]
  - CHOLELITHIASIS [None]
  - DEPRESSION [None]
  - JOINT STIFFNESS [None]
  - MOBILITY DECREASED [None]
  - MUSCULOSKELETAL STIFFNESS [None]
  - SENSATION OF HEAVINESS [None]
